FAERS Safety Report 5064629-2 (Version None)
Quarter: 2006Q3

REPORT INFORMATION
  Report Type: 
  Country: None (occurrence: None)
  Receive Date: 20060728
  Receipt Date: 20060125
  Transmission Date: 20061208
  Serious: Yes (Hospitalization)
  Sender: FDA-Public Use
  Company Number: US-ROCHE-433857

PATIENT
  Age: 25 Year
  Sex: Male
  Weight: 77.1 kg

DRUGS (1)
  1. ACCUTANE [Suspect]
     Indication: ACNE
     Route: 048
     Dates: start: 19910201, end: 19910815

REACTIONS (56)
  - ABDOMINAL STRANGULATED HERNIA [None]
  - AGGRESSION [None]
  - ALCOHOL USE [None]
  - ANXIETY [None]
  - APHTHOUS STOMATITIS [None]
  - ARTHRITIS [None]
  - ARTHROPOD BITE [None]
  - ASTHENIA [None]
  - BRONCHITIS [None]
  - BURSITIS [None]
  - CARTILAGE INJURY [None]
  - CELLULITIS [None]
  - COLITIS [None]
  - COLITIS ULCERATIVE [None]
  - COUGH [None]
  - CROHN'S DISEASE [None]
  - CYST [None]
  - DEPRESSION [None]
  - DERMAL CYST [None]
  - DERMOID CYST [None]
  - DISTURBANCE IN ATTENTION [None]
  - DYSPNOEA [None]
  - ECZEMA [None]
  - EYE OPERATION [None]
  - FATIGUE [None]
  - FEELING GUILTY [None]
  - FEELINGS OF WORTHLESSNESS [None]
  - FLIGHT OF IDEAS [None]
  - FOLLICULITIS [None]
  - HAEMORRHAGE [None]
  - HAEMORRHOIDS [None]
  - HERPES SIMPLEX [None]
  - IMPINGEMENT SYNDROME [None]
  - INFLAMMATORY BOWEL DISEASE [None]
  - INGUINAL HERNIA [None]
  - INSOMNIA [None]
  - IRRITABLE BOWEL SYNDROME [None]
  - JOINT DISLOCATION [None]
  - LIVER FUNCTION TEST ABNORMAL [None]
  - MENTAL STATUS CHANGES [None]
  - OSTEOARTHRITIS [None]
  - PANIC ATTACK [None]
  - PANIC DISORDER [None]
  - PROCTITIS [None]
  - PRURITUS GENERALISED [None]
  - PSYCHIATRIC SYMPTOM [None]
  - RECTAL FISSURE [None]
  - RECTAL HAEMORRHAGE [None]
  - RETCHING [None]
  - ROTATOR CUFF SYNDROME [None]
  - SPERMATOCELE [None]
  - SUICIDAL IDEATION [None]
  - TENDONITIS [None]
  - TINEA INFECTION [None]
  - TREMOR [None]
  - WEIGHT DECREASED [None]
